FAERS Safety Report 15770385 (Version 1)
Quarter: 2018Q4

REPORT INFORMATION
  Report Type: Spontaneous
  Country: US (occurrence: US)
  Receive Date: 20181207
  Receipt Date: 20181207
  Transmission Date: 20190205
  Serious: Yes (Death, Hospitalization)
  Sender: FDA-Public Use
  Company Number: None

PATIENT
  Age: 71 Year
  Sex: Female

DRUGS (7)
  1. ROXANOL [Concomitant]
     Active Substance: MORPHINE SULFATE
  2. LETAIRIS [Suspect]
     Active Substance: AMBRISENTAN
     Indication: CARDIAC SEPTAL DEFECT
     Route: 048
     Dates: start: 201804, end: 201811
  3. DUONEB NEB SOLN [Concomitant]
  4. ACETAMINOPHEN RECTAL SUPP [Concomitant]
  5. LORAZEPAM. [Concomitant]
     Active Substance: LORAZEPAM
  6. ATROPINE OPHT DROP [Concomitant]
  7. BISACODYL REC SUPP [Concomitant]

REACTIONS (3)
  - Peptic ulcer perforation [None]
  - Septic shock [None]
  - Liver abscess [None]

NARRATIVE: CASE EVENT DATE: 20181127
